FAERS Safety Report 7088720-4 (Version None)
Quarter: 2010Q4

REPORT INFORMATION
  Report Type: 
  Country: None (occurrence: None)
  Receive Date: 20101108
  Receipt Date: 20101027
  Transmission Date: 20110411
  Serious: Yes (Other)
  Sender: FDA-Public Use
  Company Number: TR-BAYER-201044102GPV

PATIENT

DRUGS (1)
  1. SORAFENIB [Suspect]
     Indication: RENAL NEOPLASM
     Dates: start: 20060101

REACTIONS (1)
  - ADRENAL INSUFFICIENCY [None]
